FAERS Safety Report 7091316-1 (Version None)
Quarter: 2010Q4

REPORT INFORMATION
  Report Type: 
  Country: None (occurrence: None)
  Receive Date: 20101105
  Receipt Date: 20101105
  Transmission Date: 20110411
  Serious: Yes (Hospitalization)
  Sender: FDA-Public Use
  Company Number: None

PATIENT
  Age: 45 Year
  Sex: Male

DRUGS (1)
  1. PROPOFOL [Suspect]
     Indication: SEDATION
     Dosage: IV
     Route: 042

REACTIONS (4)
  - ANAPHYLACTIC REACTION [None]
  - BLOOD PRESSURE DECREASED [None]
  - OXYGEN SATURATION DECREASED [None]
  - PROPOFOL INFUSION SYNDROME [None]
